FAERS Safety Report 17746692 (Version 3)
Quarter: 2021Q3

REPORT INFORMATION
  Report Type: Spontaneous
  Country: US (occurrence: US)
  Receive Date: 20200505
  Receipt Date: 20210728
  Transmission Date: 20211014
  Serious: Yes (Other)
  Sender: FDA-Public Use
  Company Number: US-PFIZER INC-2020179002

PATIENT
  Age: 57 Year
  Sex: Female
  Weight: 83.46 kg

DRUGS (2)
  1. XELJANZ [Suspect]
     Active Substance: TOFACITINIB CITRATE
     Indication: PSORIATIC ARTHROPATHY
  2. XELJANZ [Suspect]
     Active Substance: TOFACITINIB CITRATE
     Indication: RHEUMATOID ARTHRITIS
     Dosage: 5 MG, 2X/DAY (1 IN THE MORNING AND 1 IN THE EVENING DAILY)
     Route: 048
     Dates: start: 201910

REACTIONS (7)
  - Condition aggravated [Unknown]
  - Blood pressure increased [Unknown]
  - Pain [Not Recovered/Not Resolved]
  - Arthralgia [Unknown]
  - Insomnia [Recovered/Resolved]
  - Blood cholesterol increased [Recovering/Resolving]
  - Migraine [Recovered/Resolved]
